FAERS Safety Report 20221053 (Version 2)
Quarter: 2022Q1

REPORT INFORMATION
  Report Type: Spontaneous
  Country: US (occurrence: US)
  Receive Date: 20211223
  Receipt Date: 20220211
  Transmission Date: 20220423
  Serious: No
  Sender: FDA-Public Use
  Company Number: US-SANOFI-00901993

PATIENT
  Age: 70 Year
  Sex: Female

DRUGS (3)
  1. LANTUS SOLOSTAR [Suspect]
     Active Substance: INSULIN GLARGINE
     Indication: Type 2 diabetes mellitus
     Dosage: 45 IU, Q12H
     Route: 065
     Dates: start: 2019
  2. LANTUS [Suspect]
     Active Substance: INSULIN GLARGINE
  3. NOVOLOG [Concomitant]
     Active Substance: INSULIN ASPART
     Indication: Type 2 diabetes mellitus
     Route: 065

REACTIONS (3)
  - Pain in extremity [Unknown]
  - Depressed mood [Unknown]
  - Inappropriate schedule of product administration [Unknown]
